FAERS Safety Report 9928098 (Version 1)
Quarter: 2014Q1

REPORT INFORMATION
  Report Type: Spontaneous
  Country: US (occurrence: None)
  Receive Date: 20140226
  Receipt Date: 20140226
  Transmission Date: 20141002
  Serious: Yes (Hospitalization)
  Sender: FDA-Public Use
  Company Number: None

PATIENT
  Age: 88 Year
  Sex: Male
  Weight: 76.6 kg

DRUGS (1)
  1. HYDROCHLOROTHIAZIDE/LISINOPRIL [Suspect]
     Indication: HYPERTENSION
     Dosage: 1/2 TAB?EVERY DAY ?PO
     Route: 048
     Dates: start: 20131212, end: 20140204

REACTIONS (2)
  - Renal failure acute [None]
  - Dehydration [None]
